FAERS Safety Report 8964307 (Version 1)
Quarter: 2012Q4

REPORT INFORMATION
  Report Type: 
  Country: US (occurrence: US)
  Receive Date: 20121214
  Receipt Date: 20121214
  Transmission Date: 20130627
  Serious: No
  Sender: FDA-Public Use
  Company Number: US-PFIZER INC-2012317033

PATIENT
  Age: 67 Year
  Sex: Male
  Weight: 114.3 kg

DRUGS (1)
  1. GABAPENTIN [Suspect]
     Indication: BACK PAIN AGGRAVATED
     Dosage: 1800 mg (3 tablets of 600mg), 1x/day
     Route: 048
     Dates: start: 20121113

REACTIONS (3)
  - Musculoskeletal pain [Not Recovered/Not Resolved]
  - Spinal pain [Not Recovered/Not Resolved]
  - Myalgia [Not Recovered/Not Resolved]
